FAERS Safety Report 16903482 (Version 7)
Quarter: 2022Q3

REPORT INFORMATION
  Report Type: Spontaneous
  Country: US (occurrence: US)
  Receive Date: 20191010
  Receipt Date: 20220708
  Transmission Date: 20221027
  Serious: No
  Sender: FDA-Public Use
  Company Number: US-PFIZER INC-2019434030

PATIENT
  Age: 76 Year
  Sex: Female
  Weight: 88 kg

DRUGS (11)
  1. CHANTIX [Suspect]
     Active Substance: VARENICLINE TARTRATE
     Indication: Smoking cessation therapy
     Dosage: UNK
     Dates: start: 20150802
  2. CHANTIX [Suspect]
     Active Substance: VARENICLINE TARTRATE
     Dosage: 0.5 MG, DAILY (TOOK ONE PILL IN THE MORNING FOR 3 DAYS)
  3. CHANTIX [Suspect]
     Active Substance: VARENICLINE TARTRATE
     Dosage: 0.5 MG, 2X/DAY (MORNING AND NIGHT FOR 3 DAYS)
  4. CHANTIX [Suspect]
     Active Substance: VARENICLINE TARTRATE
     Dosage: 1 MG, UNK (FOR 7 DAYS)
  5. CHANTIX [Suspect]
     Active Substance: VARENICLINE TARTRATE
     Dosage: 10 MG, 2X/DAY
     Dates: start: 20190802, end: 20190816
  6. CHANTIX [Suspect]
     Active Substance: VARENICLINE TARTRATE
     Dosage: 0.5 MG, DAILY (FOR 3 DAYS)
     Route: 048
  7. CHANTIX [Suspect]
     Active Substance: VARENICLINE TARTRATE
     Dosage: 0.5 MG, 2X/DAY (FOR 4 DAYS)
     Route: 048
  8. CHANTIX [Suspect]
     Active Substance: VARENICLINE TARTRATE
     Dosage: 1 MG, 2X/DAY
     Route: 048
  9. CHANTIX [Suspect]
     Active Substance: VARENICLINE TARTRATE
     Dosage: UNK
  10. CHANTIX [Suspect]
     Active Substance: VARENICLINE TARTRATE
     Dosage: UNK
  11. CHANTIX [Suspect]
     Active Substance: VARENICLINE TARTRATE
     Dosage: UNK

REACTIONS (9)
  - Overdose [Recovered/Resolved]
  - Nightmare [Recovered/Resolved]
  - Swollen tongue [Recovered/Resolved]
  - Tongue blistering [Recovered/Resolved]
  - Dysgeusia [Recovered/Resolved]
  - Drug hypersensitivity [Unknown]
  - Stomatitis [Unknown]
  - Oral mucosal blistering [Unknown]
  - Oral mucosal eruption [Unknown]

NARRATIVE: CASE EVENT DATE: 20190101
